FAERS Safety Report 21510959 (Version 19)
Quarter: 2024Q1

REPORT INFORMATION
  Report Type: Spontaneous
  Country: CA (occurrence: CA)
  Receive Date: 20221026
  Receipt Date: 20240131
  Transmission Date: 20240409
  Serious: Yes (Life-Threatening, Hospitalization, Other)
  Sender: FDA-Public Use
  Company Number: CA-CELLTRION INC.-2022CA008330

PATIENT

DRUGS (27)
  1. INFLECTRA [Suspect]
     Active Substance: INFLIXIMAB-DYYB
     Indication: Crohn^s disease
     Dosage: 300 MG WEEK 0 DOSE
     Route: 042
     Dates: start: 20171010, end: 20171010
  2. INFLECTRA [Suspect]
     Active Substance: INFLIXIMAB-DYYB
     Dosage: 300 MG WEEK 2 DOSE
     Route: 042
     Dates: start: 20171024, end: 20171024
  3. INFLECTRA [Suspect]
     Active Substance: INFLIXIMAB-DYYB
     Dosage: 300 MG WEEK 6 DOSE
     Route: 042
     Dates: start: 20171212, end: 20171212
  4. INFLECTRA [Suspect]
     Active Substance: INFLIXIMAB-DYYB
     Dosage: 300 MG, EVERY 8 WEEKS
     Route: 042
     Dates: start: 20180208, end: 20181219
  5. INFLECTRA [Suspect]
     Active Substance: INFLIXIMAB-DYYB
     Dosage: 700 MG, EVERY 8 WEEKS
     Route: 042
     Dates: start: 20190226, end: 20210712
  6. INFLECTRA [Suspect]
     Active Substance: INFLIXIMAB-DYYB
     Dosage: 600 MG, EVERY 8 WEEKS
     Route: 042
     Dates: start: 20211004, end: 20220817
  7. INFLECTRA [Suspect]
     Active Substance: INFLIXIMAB-DYYB
     Dosage: 600 MG, EVERY 8 WEEKS
     Route: 042
     Dates: start: 20220217
  8. INFLECTRA [Suspect]
     Active Substance: INFLIXIMAB-DYYB
     Dosage: 600 MG, EVERY 8 WEEKS
     Route: 042
     Dates: start: 20220418
  9. INFLECTRA [Suspect]
     Active Substance: INFLIXIMAB-DYYB
     Dosage: 600 MG, EVERY 8 WEEKS
     Route: 042
     Dates: start: 20220622
  10. INFLECTRA [Suspect]
     Active Substance: INFLIXIMAB-DYYB
     Dosage: 600 MG, EVERY 8 WEEKS
     Route: 042
     Dates: start: 20220817
  11. INFLECTRA [Suspect]
     Active Substance: INFLIXIMAB-DYYB
     Dosage: 600 MG, EVERY 8 WEEKS
     Route: 042
     Dates: start: 20220817
  12. INFLECTRA [Suspect]
     Active Substance: INFLIXIMAB-DYYB
     Dosage: 700 MG, EVERY 8 WEEKS
     Route: 042
     Dates: start: 20221017
  13. INFLECTRA [Suspect]
     Active Substance: INFLIXIMAB-DYYB
     Dosage: 700 MG, EVERY 8 WEEKS
     Route: 042
     Dates: start: 20221213
  14. INFLECTRA [Suspect]
     Active Substance: INFLIXIMAB-DYYB
     Dosage: 700 MG, EVERY 8 WEEKS
     Route: 042
     Dates: start: 20230301
  15. INFLECTRA [Suspect]
     Active Substance: INFLIXIMAB-DYYB
     Dosage: 700 MG, EVERY 8 WEEKS
     Route: 042
     Dates: start: 20230428
  16. INFLECTRA [Suspect]
     Active Substance: INFLIXIMAB-DYYB
     Dosage: 700 MG, EVERY 8 WEEKS
     Route: 042
     Dates: start: 20230628
  17. INFLECTRA [Suspect]
     Active Substance: INFLIXIMAB-DYYB
     Dosage: 700 MG, EVERY 8 WEEKS (BUT RECEIVED IT 11 WEEKS AND 2 DAYS AFTER THE LAST INFUSION)
     Route: 042
     Dates: start: 20230915
  18. INFLECTRA [Suspect]
     Active Substance: INFLIXIMAB-DYYB
     Dosage: 700 MG, 7 WEEKS AND 6 DAYS
     Route: 042
     Dates: start: 20231109
  19. INFLECTRA [Suspect]
     Active Substance: INFLIXIMAB-DYYB
     Dosage: 700 MG EVERY 8 WEEKS (700 MG AFTER 10 WEEKS AND 5 DAYS)
     Route: 042
     Dates: start: 20240123
  20. AZATHIOPRINE [Concomitant]
     Active Substance: AZATHIOPRINE
     Indication: Colitis
     Dosage: 1 DF
     Route: 065
  21. CLOTRIMAZOLE [Concomitant]
     Active Substance: CLOTRIMAZOLE
     Indication: Vaginal infection
     Dosage: 1 DF
     Route: 065
     Dates: start: 20181023
  22. METRONIDAZOLE BENZOATE [Concomitant]
     Active Substance: METRONIDAZOLE BENZOATE
     Dosage: 1 DF
     Route: 065
  23. METHOTREXATE [Concomitant]
     Active Substance: METHOTREXATE
     Dosage: 12 MG
     Dates: start: 201709, end: 20180117
  24. METHOTREXATE [Concomitant]
     Active Substance: METHOTREXATE
     Dosage: 12.5 MG
     Route: 065
     Dates: start: 201709, end: 20180117
  25. PREDNISONE [Concomitant]
     Active Substance: PREDNISONE
     Dosage: 1 DF
     Route: 065
  26. MESALAMINE [Concomitant]
     Active Substance: MESALAMINE
     Dosage: 1 DF
     Route: 065
  27. XANAX XR [Concomitant]
     Active Substance: ALPRAZOLAM
     Dosage: 1 MG

REACTIONS (27)
  - Anaphylactic shock [Unknown]
  - Head injury [Not Recovered/Not Resolved]
  - Angina pectoris [Not Recovered/Not Resolved]
  - Condition aggravated [Recovering/Resolving]
  - Influenza like illness [Not Recovered/Not Resolved]
  - Hypersensitivity [Not Recovered/Not Resolved]
  - Pyrexia [Recovered/Resolved]
  - Weight decreased [Unknown]
  - Stress [Unknown]
  - Headache [Not Recovered/Not Resolved]
  - Nausea [Not Recovered/Not Resolved]
  - Dizziness [Not Recovered/Not Resolved]
  - Migraine [Not Recovered/Not Resolved]
  - Fatigue [Recovered/Resolved]
  - Influenza [Not Recovered/Not Resolved]
  - Rhinorrhoea [Not Recovered/Not Resolved]
  - Oropharyngeal pain [Recovered/Resolved]
  - Malaise [Recovered/Resolved]
  - Arthralgia [Recovered/Resolved]
  - Nasopharyngitis [Recovered/Resolved]
  - Hypersensitivity [Unknown]
  - Dyspnoea [Recovering/Resolving]
  - Pyrexia [Recovered/Resolved]
  - Cough [Recovered/Resolved]
  - Respiratory tract infection viral [Recovered/Resolved]
  - Inappropriate schedule of product administration [Unknown]
  - Product dose omission issue [Unknown]

NARRATIVE: CASE EVENT DATE: 20220418
